FAERS Safety Report 12435410 (Version 1)
Quarter: 2016Q2

REPORT INFORMATION
  Report Type: Spontaneous
  Country: US (occurrence: US)
  Receive Date: 20160603
  Receipt Date: 20160603
  Transmission Date: 20160815
  Serious: Yes (Other)
  Sender: FDA-Public Use
  Company Number: US-ROCHE-1593924

PATIENT
  Age: 69 Year
  Sex: Female

DRUGS (10)
  1. NORCO [Concomitant]
     Active Substance: ACETAMINOPHEN\HYDROCODONE BITARTRATE
     Dosage: 1 TO 2 AS NEEDED; SINCE LAST YEAR
     Route: 065
  2. ROPINIROLE. [Concomitant]
     Active Substance: ROPINIROLE
     Indication: RESTLESS LEGS SYNDROME
     Dosage: FOR 4 OR 5 YEARS
     Route: 065
  3. OMEPRAZOLE. [Concomitant]
     Active Substance: OMEPRAZOLE
     Indication: GASTROOESOPHAGEAL REFLUX DISEASE
     Dosage: OVER 10 YEARS
     Route: 065
  4. NAPROXEN. [Concomitant]
     Active Substance: NAPROXEN
     Indication: INFLAMMATION
     Dosage: FOR 2 YEARS
     Route: 065
  5. GABAPENTIN. [Concomitant]
     Active Substance: GABAPENTIN
     Indication: MUSCLE SPASMS
     Dosage: AT BEDTIME; FOR 10 TO 12 YEARS
     Route: 065
  6. ASPIRIN. [Concomitant]
     Active Substance: ASPIRIN
     Dosage: AT BEDTIME
     Route: 065
  7. MORPHINE [Concomitant]
     Active Substance: MORPHINE
     Route: 065
     Dates: start: 201505
  8. XELODA [Suspect]
     Active Substance: CAPECITABINE
     Indication: BREAST CANCER METASTATIC
     Dosage: 2 PILLS MORNING/EVENING; 7DAYS OFF
     Route: 065
  9. ZETIA [Concomitant]
     Active Substance: EZETIMIBE
     Indication: BLOOD CHOLESTEROL INCREASED
     Dosage: OVER A YEAR
     Route: 065
  10. SENNA [Concomitant]
     Active Substance: SENNA LEAF\SENNOSIDES\SENNOSIDES A AND B
     Indication: CONSTIPATION
     Dosage: 2 PILLS EVERY NIGHT; FOR ABOUT A YEAR
     Route: 065

REACTIONS (4)
  - Arthralgia [Unknown]
  - Nausea [Unknown]
  - Dizziness [Unknown]
  - Palmar-plantar erythrodysaesthesia syndrome [Recovered/Resolved]

NARRATIVE: CASE EVENT DATE: 20150512
